FAERS Safety Report 5319456-5 (Version None)
Quarter: 2007Q2

REPORT INFORMATION
  Report Type: 
  Country: None (occurrence: None)
  Receive Date: 20070508
  Receipt Date: 20070426
  Transmission Date: 20071010
  Serious: Yes (Other)
  Sender: FDA-Public Use
  Company Number: FR-PFIZER INC-2007030098

PATIENT
  Sex: Male
  Weight: 92 kg

DRUGS (2)
  1. CELEBREX [Suspect]
     Indication: SCIATICA
     Route: 048
     Dates: start: 20070411, end: 20070411
  2. MYOLASTAN [Interacting]
     Indication: SCIATICA
     Route: 048
     Dates: start: 20070411, end: 20070411

REACTIONS (2)
  - CONFUSIONAL STATE [None]
  - DRUG INTERACTION [None]
